FAERS Safety Report 10950809 (Version 2)
Quarter: 2015Q2

REPORT INFORMATION
  Report Type: Report from Study
  Country: US (occurrence: US)
  Receive Date: 20150324
  Receipt Date: 20150428
  Transmission Date: 20150821
  Serious: Yes (Other)
  Sender: FDA-Public Use
  Company Number: US-GILEAD-2015-0142201

PATIENT
  Age: 67 Year
  Sex: Female

DRUGS (3)
  1. RIBAVIRIN. [Concomitant]
     Active Substance: RIBAVIRIN
     Indication: CHRONIC HEPATITIS C
     Dosage: 600 MG, BID
     Route: 048
     Dates: start: 20150114, end: 20150206
  2. RIBAVIRIN. [Concomitant]
     Active Substance: RIBAVIRIN
     Dosage: 400 MG, BID
     Route: 048
     Dates: start: 20150206
  3. LEDIPASVIR/SOFOSBUVIR [Suspect]
     Active Substance: LEDIPASVIR\SOFOSBUVIR
     Indication: CHRONIC HEPATITIS C
     Dosage: 1 DF, QD
     Route: 048
     Dates: start: 20141205

REACTIONS (3)
  - Irritability [Unknown]
  - Hepatitis C virus test positive [Unknown]
  - Hip arthroplasty [Unknown]

NARRATIVE: CASE EVENT DATE: 20150311
